FAERS Safety Report 21570592 (Version 1)
Quarter: 2022Q4

REPORT INFORMATION
  Report Type: Other
  Country: US (occurrence: None)
  Receive Date: 20221109
  Receipt Date: 20221109
  Transmission Date: 20230113
  Serious: Yes (Other)
  Sender: FDA-Public Use
  Company Number: US-ROCHE-3214408

PATIENT
  Age: 24 Year
  Sex: Female

DRUGS (2)
  1. RITUXIMAB [Suspect]
     Active Substance: RITUXIMAB
     Indication: Histiocytic necrotising lymphadenitis
     Route: 065
  2. PREDNISONE [Suspect]
     Active Substance: PREDNISONE
     Indication: Histiocytic necrotising lymphadenitis
     Route: 065

REACTIONS (2)
  - Papillary thyroid cancer [Unknown]
  - Disease progression [Unknown]
